FAERS Safety Report 17538779 (Version 1)
Quarter: 2020Q1

REPORT INFORMATION
  Report Type: Spontaneous
  Country: US (occurrence: US)
  Receive Date: 20200306
  Receipt Date: 20200306
  Transmission Date: 20200409
  Serious: No
  Sender: FDA-Public Use
  Company Number: None

PATIENT
  Age: 45 Year
  Sex: Male

DRUGS (1)
  1. TACROLIMUS CAP 5MG [Suspect]
     Active Substance: TACROLIMUS
     Indication: RENAL TRANSPLANT
     Route: 048
     Dates: start: 201810

REACTIONS (3)
  - Dizziness [None]
  - Feeling abnormal [None]
  - Therapy cessation [None]

NARRATIVE: CASE EVENT DATE: 20200224
